FAERS Safety Report 24637975 (Version 1)
Quarter: 2024Q4

REPORT INFORMATION
  Report Type: Spontaneous
  Country: US (occurrence: US)
  Receive Date: 20241119
  Receipt Date: 20241119
  Transmission Date: 20250114
  Serious: Yes (Other)
  Sender: PFIZER
  Company Number: US-PFIZER INC-PV202400149687

PATIENT
  Age: 83 Year
  Sex: Male
  Weight: 66.399 kg

DRUGS (4)
  1. VYNDAMAX [Suspect]
     Active Substance: TAFAMIDIS
     Indication: Cardiac amyloidosis
     Dosage: ONE 61 MG TAFAMIDIS CAPSULE ORALLY ONCE DAILY/TAKE 61 MG BY MOUTH IN THE MORNING
     Route: 048
     Dates: start: 202107
  2. VYNDAMAX [Suspect]
     Active Substance: TAFAMIDIS
     Indication: Hypergammaglobulinaemia benign monoclonal
  3. VYNDAMAX [Suspect]
     Active Substance: TAFAMIDIS
     Indication: Cardiac amyloidosis
  4. ALDACTONE [Concomitant]
     Active Substance: SPIRONOLACTONE
     Dosage: TAKE 1 TABLET (25 MG) BY MOUTH IF NEEDED
     Route: 048

REACTIONS (1)
  - Cardiac failure [Unknown]
